FAERS Safety Report 7472304-X (Version None)
Quarter: 2011Q2

REPORT INFORMATION
  Report Type: 
  Country: None (occurrence: None)
  Receive Date: 20110511
  Receipt Date: 20110504
  Transmission Date: 20111010
  Serious: Yes (Other)
  Sender: FDA-Public Use
  Company Number: US-SANOFI-AVENTIS-2011SA023193

PATIENT
  Age: 78 Year
  Sex: Male
  Weight: 82 kg

DRUGS (6)
  1. LANTUS [Suspect]
     Dosage: DOSE:35 UNIT(S)
     Route: 058
     Dates: start: 20080205
  2. LANTUS [Suspect]
     Dates: start: 20080101
  3. FINASTERIDE [Concomitant]
     Dates: start: 20100426
  4. METOPROLOL SUCCINATE [Concomitant]
     Indication: HYPERTENSION
     Dates: start: 20110413
  5. AVODART [Concomitant]
     Dates: start: 20100426
  6. SIMVASTATIN [Concomitant]
     Dates: start: 20110413

REACTIONS (1)
  - CEREBROVASCULAR ACCIDENT [None]
